FAERS Safety Report 8963407 (Version 1)
Quarter: 2012Q4

REPORT INFORMATION
  Report Type: 
  Country: CN (occurrence: CN)
  Receive Date: 20121213
  Receipt Date: 20121213
  Transmission Date: 20130627
  Serious: Yes (Other)
  Sender: FDA-Public Use
  Company Number: PHHY2012CN108728

PATIENT
  Age: 46 Year
  Sex: Male

DRUGS (2)
  1. SEBIVO [Suspect]
     Indication: VIRAL INFECTION
     Dosage: 600 mg, QD
     Route: 048
     Dates: start: 20100305, end: 20101219
  2. ADEFOVIR DIPIVOXIL [Concomitant]
     Indication: VIRAL INFECTION
     Dosage: UNK

REACTIONS (6)
  - Rhabdomyolysis [Recovered/Resolved]
  - Blood creatine phosphokinase increased [Recovered/Resolved]
  - Myoglobin blood increased [Recovered/Resolved]
  - Asthenia [Recovered/Resolved]
  - Myalgia [Recovered/Resolved]
  - Aspartate aminotransferase increased [Recovered/Resolved]
